FAERS Safety Report 9645225 (Version 1)
Quarter: 2013Q4

REPORT INFORMATION
  Report Type: Spontaneous
  Country: US (occurrence: None)
  Receive Date: 20131023
  Receipt Date: 20131023
  Transmission Date: 20140711
  Serious: No
  Sender: FDA-Public Use
  Company Number: None

PATIENT
  Age: 71 Year
  Sex: Male
  Weight: 70.3 kg

DRUGS (1)
  1. TOCILIZUMAB [Suspect]
     Route: 042
     Dates: start: 20101101, end: 20130814

REACTIONS (1)
  - Jaundice [None]
